FAERS Safety Report 10062320 (Version 4)
Quarter: 2016Q1

REPORT INFORMATION
  Report Type: Spontaneous
  Country: US (occurrence: US)
  Receive Date: 20140407
  Receipt Date: 20160125
  Transmission Date: 20160525
  Serious: Yes (Hospitalization, Other)
  Sender: FDA-Public Use
  Company Number: US-GLAXOSMITHKLINE-A1059062A

PATIENT
  Age: 49 Year
  Sex: Female

DRUGS (8)
  1. BENLYSTA [Suspect]
     Active Substance: BELIMUMAB
     Indication: SYSTEMIC LUPUS ERYTHEMATOSUS
  2. CARDIZEM [Concomitant]
     Active Substance: DILTIAZEM HYDROCHLORIDE
  3. LASIX [Concomitant]
     Active Substance: FUROSEMIDE
  4. ALDACTONE [Concomitant]
     Active Substance: SPIRONOLACTONE
  5. PLAQUENIL [Concomitant]
     Active Substance: HYDROXYCHLOROQUINE SULFATE
  6. PREDNISONE. [Concomitant]
     Active Substance: PREDNISONE
  7. LUNESTA [Concomitant]
     Active Substance: ESZOPICLONE
  8. BENLYSTA [Suspect]
     Active Substance: BELIMUMAB
     Indication: SYSTEMIC LUPUS ERYTHEMATOSUS
     Dosage: UNK UNK, UNK
     Route: 042
     Dates: start: 201107, end: 201501

REACTIONS (34)
  - Pancreatic mass [Recovering/Resolving]
  - Spleen operation [Unknown]
  - Gastritis [Recovering/Resolving]
  - Gastric disorder [Unknown]
  - Adrenal mass [Unknown]
  - Gastric polyps [Recovering/Resolving]
  - Omental infarction [Recovering/Resolving]
  - Swelling [Recovering/Resolving]
  - Fluid retention [Recovering/Resolving]
  - Pain in jaw [Unknown]
  - Condition aggravated [Unknown]
  - Diabetes mellitus [Not Recovered/Not Resolved]
  - Spleen disorder [Unknown]
  - Splenectomy [Unknown]
  - Lymphadenopathy [Unknown]
  - Cerebral disorder [Unknown]
  - Scar [Unknown]
  - Dyspnoea [Recovering/Resolving]
  - Chest discomfort [Recovering/Resolving]
  - Pain [Recovering/Resolving]
  - Back pain [Unknown]
  - Intestinal polyp [Unknown]
  - Blood potassium decreased [Unknown]
  - Pancreatectomy [Unknown]
  - Neck pain [Unknown]
  - Abdominal pain upper [Unknown]
  - Gastric polypectomy [Unknown]
  - Pancreatic operation [Unknown]
  - Malaise [Unknown]
  - Gastroparesis postoperative [Unknown]
  - Large intestine polyp [Recovering/Resolving]
  - Pancreatic disorder [Unknown]
  - Intestinal polypectomy [Unknown]
  - Pancreatitis [Recovering/Resolving]

NARRATIVE: CASE EVENT DATE: 201302
